FAERS Safety Report 18105272 (Version 1)
Quarter: 2020Q3

REPORT INFORMATION
  Report Type: Spontaneous
  Country: IT (occurrence: IT)
  Receive Date: 20200803
  Receipt Date: 20200803
  Transmission Date: 20201103
  Serious: Yes (Other)
  Sender: FDA-Public Use
  Company Number: IT-ALLERGAN-2028842US

PATIENT
  Sex: Male
  Weight: 80 kg

DRUGS (1)
  1. FOSFOMYCIN TROMETHAMINE ? BP [Suspect]
     Active Substance: FOSFOMYCIN TROMETHAMINE
     Indication: URINARY TRACT INFECTION
     Dosage: 3 G CYCLICALLY
     Route: 048

REACTIONS (3)
  - Product use issue [Unknown]
  - Dysentery [Recovering/Resolving]
  - Decreased appetite [Recovering/Resolving]
